FAERS Safety Report 5257710-6 (Version None)
Quarter: 2007Q1

REPORT INFORMATION
  Report Type: 
  Country: None (occurrence: None)
  Receive Date: 20070307
  Receipt Date: 20070228
  Transmission Date: 20070707
  Serious: Yes (Hospitalization)
  Sender: FDA-Public Use
  Company Number: US-BRISTOL-MYERS SQUIBB COMPANY-13505961

PATIENT
  Age: 50 Year
  Sex: Female
  Weight: 61 kg

DRUGS (31)
  1. CETUXIMAB [Suspect]
     Indication: CERVIX CARCINOMA
     Route: 042
     Dates: start: 20060824, end: 20060824
  2. CISPLATIN [Suspect]
     Indication: CERVIX CARCINOMA
  3. RADIATION THERAPY [Suspect]
     Indication: CERVIX CARCINOMA
     Dates: start: 20060728
  4. EFFEXOR [Concomitant]
  5. LEVOTHYROXINE SODIUM [Concomitant]
     Route: 048
  6. HYDROCODONE [Concomitant]
  7. ACETAMINOPHEN+PSEUDOEPHEDRINE [Concomitant]
  8. ACETYLSALICYLIC ACID SRT [Concomitant]
  9. ALBUTEROL [Concomitant]
  10. ALUMINUM MAGNESIUM HYDROXIDE [Concomitant]
  11. BISMUTH SUBSALICYLATE [Concomitant]
  12. CLINDAMYCIN PHOSPHATE [Concomitant]
  13. DIPHENOXYLATE HCL + ATROPINE SULFATE [Concomitant]
     Route: 048
  14. MORPHINE [Concomitant]
  15. PHENAZOPYRIDINE HCL TAB [Concomitant]
  16. PROCHLORPERAZINE [Concomitant]
     Route: 048
  17. TIOTROPIUM BROMIDE [Concomitant]
  18. ZOLPIDEM TARTRATE [Concomitant]
  19. OXYCONTIN [Concomitant]
     Route: 048
  20. OXYCODONE HCL [Concomitant]
     Route: 048
  21. ONDANSETRON [Concomitant]
  22. OPIUM TINCTURE [Concomitant]
  23. SIMETHICONE [Concomitant]
     Route: 048
  24. CLONAZEPAM [Concomitant]
     Route: 048
  25. LOMOTIL [Concomitant]
     Route: 048
  26. VENLAFAXINE HCL [Concomitant]
     Route: 048
  27. FAMOTIDINE [Concomitant]
     Route: 048
  28. LOPERAMIDE HCL [Concomitant]
     Indication: DIARRHOEA
     Route: 048
  29. MIRTAZAPINE [Concomitant]
     Route: 048
  30. ENSURE [Concomitant]
     Indication: ENTERAL NUTRITION
     Route: 048
  31. LORAZEPAM [Concomitant]
     Route: 048

REACTIONS (12)
  - ABDOMINAL PAIN [None]
  - ABDOMINAL TENDERNESS [None]
  - ALANINE AMINOTRANSFERASE INCREASED [None]
  - ASPARTATE AMINOTRANSFERASE INCREASED [None]
  - DEEP VEIN THROMBOSIS [None]
  - DIARRHOEA [None]
  - ELECTROLYTE IMBALANCE [None]
  - GASTROENTERITIS RADIATION [None]
  - HYPOXIA [None]
  - NAUSEA [None]
  - ORAL INTAKE REDUCED [None]
  - VOMITING [None]
